FAERS Safety Report 23699130 (Version 7)
Quarter: 2025Q2

REPORT INFORMATION
  Report Type: Spontaneous
  Country: US (occurrence: US)
  Receive Date: 20240402
  Receipt Date: 20250610
  Transmission Date: 20250717
  Serious: No
  Sender: PHARMING GROUP
  Company Number: US-PHARMING-PHAUS2024000276

PATIENT

DRUGS (10)
  1. RUCONEST [Suspect]
     Active Substance: CONESTAT ALFA
     Indication: Hereditary angioedema
     Dosage: 3700 IU, TWICE WEEKLY
     Route: 042
     Dates: start: 20200630
  2. RUCONEST [Suspect]
     Active Substance: CONESTAT ALFA
     Dosage: 3800 IU, TWICE WEEKLY
     Route: 042
     Dates: start: 202007
  3. RUCONEST [Suspect]
     Active Substance: CONESTAT ALFA
     Route: 042
     Dates: start: 202007
  4. RUCONEST [Suspect]
     Active Substance: CONESTAT ALFA
     Dosage: 3900 IU, TWICE WEEKLY
     Route: 042
     Dates: start: 202007
  5. RUCONEST [Suspect]
     Active Substance: CONESTAT ALFA
     Dosage: 3900 IU, TWICE WEEKLY
     Route: 042
     Dates: start: 202007
  6. TAKHZYRO [Concomitant]
     Active Substance: LANADELUMAB-FLYO
     Indication: Product used for unknown indication
  7. DUPIXENT [Concomitant]
     Active Substance: DUPILUMAB
     Indication: Asthma
  8. HUMIRA [Concomitant]
     Active Substance: ADALIMUMAB
     Indication: Product used for unknown indication
  9. EPINEPHRINE [Concomitant]
     Active Substance: EPINEPHRINE
     Indication: Product used for unknown indication
  10. PAIN EASE                          /08051701/ [Concomitant]
     Indication: Product used for unknown indication

REACTIONS (3)
  - Weight fluctuation [Unknown]
  - Underdose [Unknown]
  - Intentional product use issue [Unknown]
